FAERS Safety Report 6664641-3 (Version None)
Quarter: 2010Q2

REPORT INFORMATION
  Report Type: 
  Country: None (occurrence: None)
  Receive Date: 20100401
  Receipt Date: 20100323
  Transmission Date: 20101027
  Serious: Yes (Hospitalization)
  Sender: FDA-Public Use
  Company Number: PHHY2010FR18099

PATIENT
  Age: 50 Year
  Sex: Female

DRUGS (2)
  1. CERTICAN [Suspect]
     Indication: RENAL TRANSPLANT
     Dosage: 1.5 MG, BID
     Route: 048
  2. TRIATEC [Concomitant]

REACTIONS (2)
  - DYSPNOEA [None]
  - TONGUE OEDEMA [None]
